FAERS Safety Report 18325836 (Version 1)
Quarter: 2020Q3

REPORT INFORMATION
  Report Type: Spontaneous
  Country: CA (occurrence: CA)
  Receive Date: 20200929
  Receipt Date: 20200929
  Transmission Date: 20201103
  Serious: Yes (Other)
  Sender: FDA-Public Use
  Company Number: CA-MYLANLABS-2020M1082541

PATIENT
  Sex: Female

DRUGS (10)
  1. VALACICLOVIR [Concomitant]
     Active Substance: VALACYCLOVIR HYDROCHLORIDE
     Indication: PROPHYLAXIS
  2. RITUXIMAB. [Suspect]
     Active Substance: RITUXIMAB
     Dosage: ON DAYS 1 AND 15
     Route: 042
     Dates: start: 201701
  3. BORTEZOMIB. [Concomitant]
     Active Substance: BORTEZOMIB
     Indication: AUTOIMMUNE RETINOPATHY
     Dosage: ALONG WITH DEXAMETHASONE
     Route: 058
     Dates: start: 201701
  4. RITUXIMAB. [Suspect]
     Active Substance: RITUXIMAB
     Indication: AUTOIMMUNE RETINOPATHY
     Dosage: TWO DOSES OF 1G EACH SEPARATED BY TWO WEEK (REPEATED SIX MONTHS)
     Route: 042
  5. ONDANSETRON [Concomitant]
     Active Substance: ONDANSETRON
     Indication: ANTIEMETIC SUPPORTIVE CARE
     Dosage: UNK
     Route: 065
  6. VALACICLOVIR [Concomitant]
     Active Substance: VALACYCLOVIR HYDROCHLORIDE
     Indication: VARICELLA ZOSTER VIRUS INFECTION
     Dosage: UNK
     Route: 065
  7. METHOTREXATE. [Suspect]
     Active Substance: METHOTREXATE
     Indication: AUTOIMMUNE RETINOPATHY
     Dosage: UNKNOWN INITIAL DOSE THAT WAS INCREASED TO 25MG
     Route: 058
  8. TRIAMCINOLONE ACETONIDE. [Suspect]
     Active Substance: TRIAMCINOLONE ACETONIDE
     Indication: AUTOIMMUNE RETINOPATHY
     Dosage: SUB?TENON^S TRIAMCINOLONE ADMINISTERED BILATERALLY
     Route: 065
  9. FOLINIC ACID [Suspect]
     Active Substance: LEUCOVORIN
     Indication: AUTOIMMUNE RETINOPATHY
     Dosage: 5 MILLIGRAM, QD
     Route: 065
  10. DEXAMETHASONE. [Suspect]
     Active Substance: DEXAMETHASONE
     Indication: AUTOIMMUNE RETINOPATHY
     Dosage: ON DAYS 1, 8, AND 15 OUT OF A 28?DAY CYCLE (TOTAL OF 6 CYCLES)
     Route: 048

REACTIONS (2)
  - Drug ineffective for unapproved indication [Unknown]
  - Off label use [Unknown]
